FAERS Safety Report 8879946 (Version 1)
Quarter: 2012Q4

REPORT INFORMATION
  Report Type: 
  Country: US (occurrence: US)
  Receive Date: 20121031
  Receipt Date: 20121031
  Transmission Date: 20130627
  Serious: Yes (Other)
  Sender: FDA-Public Use
  Company Number: US-ROCHE-CID000000002133797

PATIENT
  Age: 14 Year
  Sex: Male

DRUGS (2)
  1. PROTROPIN [Suspect]
     Indication: PRODUCT USED FOR UNKNOWN INDICATION
     Route: 065
  2. PROTROPIN [Suspect]
     Route: 065

REACTIONS (2)
  - Drug ineffective [Unknown]
  - Epiphyseal fracture [Unknown]
